FAERS Safety Report 6110856-2 (Version None)
Quarter: 2009Q1

REPORT INFORMATION
  Report Type: 
  Country: None (occurrence: None)
  Receive Date: 20090309
  Receipt Date: 20090223
  Transmission Date: 20090719
  Serious: Yes (Other)
  Sender: FDA-Public Use
  Company Number: US-1168437

PATIENT
  Age: 52 Year
  Sex: Female
  Weight: 52 kg

DRUGS (8)
  1. ECONOPRED PLUS [Suspect]
     Indication: CATARACT OPERATION
     Dosage: 1 GTT OU Q WAKING HOUR OPHTHALMIC
     Route: 047
     Dates: start: 20080621
  2. LOTEMAX [Concomitant]
  3. HUMULIN N [Concomitant]
  4. NEVANAC [Concomitant]
  5. COMBIGAN [Concomitant]
  6. ST JOHN'S WORT [Concomitant]
  7. CYCLOGYL [Concomitant]
  8. ACIDOPHILUS [Concomitant]

REACTIONS (3)
  - ALOPECIA [None]
  - INTRAOCULAR PRESSURE INCREASED [None]
  - ONYCHOCLASIS [None]
